FAERS Safety Report 5111436-8 (Version None)
Quarter: 2006Q3

REPORT INFORMATION
  Report Type: 
  Country: None (occurrence: None)
  Receive Date: 20060922
  Receipt Date: 20051028
  Transmission Date: 20061208
  Serious: No
  Sender: FDA-Public Use
  Company Number: US-GLAXOSMITHKLINE-A0580029A

PATIENT
  Age: 56 Year
  Sex: Male

DRUGS (1)
  1. ABREVA [Suspect]
     Dates: start: 20051026

REACTIONS (3)
  - CHEILITIS [None]
  - LIP HAEMORRHAGE [None]
  - LIP PAIN [None]
